FAERS Safety Report 6521576-4 (Version None)
Quarter: 2009Q4

REPORT INFORMATION
  Report Type: 
  Country: None (occurrence: None)
  Receive Date: 20091230
  Receipt Date: 20091216
  Transmission Date: 20100525
  Serious: Yes (Other)
  Sender: FDA-Public Use
  Company Number: PHHY2009BR56133

PATIENT
  Age: 24 Year
  Sex: Male

DRUGS (1)
  1. RITALIN [Suspect]
     Dosage: 10MG, UNK

REACTIONS (5)
  - ABNORMAL BEHAVIOUR [None]
  - BIPOLAR DISORDER [None]
  - DEPRESSION [None]
  - FEELING ABNORMAL [None]
  - TREATMENT NONCOMPLIANCE [None]
